FAERS Safety Report 6330554-X (Version None)
Quarter: 2009Q3

REPORT INFORMATION
  Report Type: 
  Country: None (occurrence: None)
  Receive Date: 20090826
  Receipt Date: 20090826
  Transmission Date: 20100115
  Serious: No
  Sender: FDA-Public Use
  Company Number: None

PATIENT
  Age: 57 Year
  Sex: Male
  Weight: 74.8435 kg

DRUGS (1)
  1. ZICAM NASAL GEL MATRIXX [Suspect]
     Indication: NASOPHARYNGITIS
     Dosage: 1 SQUEEZE IN EACH NOSTRIL EVERY 4 HOURS NASAL
     Route: 045
     Dates: start: 20090315, end: 20090322

REACTIONS (2)
  - AGEUSIA [None]
  - ANOSMIA [None]
